FAERS Safety Report 6827278-9 (Version None)
Quarter: 2010Q3

REPORT INFORMATION
  Report Type: 
  Country: None (occurrence: None)
  Receive Date: 20100709
  Receipt Date: 20100709
  Transmission Date: 20110219
  Serious: Yes (Death)
  Sender: FDA-Public Use
  Company Number: US-WYE-H15702010

PATIENT

DRUGS (1)
  1. TORISEL [Suspect]
     Dosage: NOT PROVIDED

REACTIONS (1)
  - DISEASE PROGRESSION [None]
